FAERS Safety Report 9559809 (Version 7)
Quarter: 2016Q1

REPORT INFORMATION
  Report Type: Spontaneous
  Country: AU (occurrence: AU)
  Receive Date: 20130927
  Receipt Date: 20160113
  Transmission Date: 20160526
  Serious: Yes (Death, Other)
  Sender: FDA-Public Use
  Company Number: AU-PFIZER INC-2013278483

PATIENT
  Age: 22 Year
  Sex: Male

DRUGS (2)
  1. CHAMPIX [Suspect]
     Active Substance: VARENICLINE TARTRATE
     Indication: SMOKING CESSATION THERAPY
     Dosage: UNK
     Dates: start: 201304, end: 201304
  2. CHAMPIX [Suspect]
     Active Substance: VARENICLINE TARTRATE
     Dosage: UNK, 2X/DAY
     Dates: start: 201304

REACTIONS (5)
  - Feeling abnormal [Unknown]
  - Abnormal behaviour [Unknown]
  - Anger [Unknown]
  - Aggression [Unknown]
  - Completed suicide [Fatal]

NARRATIVE: CASE EVENT DATE: 201304
